FAERS Safety Report 8983374 (Version 1)
Quarter: 2012Q4

REPORT INFORMATION
  Report Type: 
  Country: US (occurrence: US)
  Receive Date: 20121224
  Receipt Date: 20121224
  Transmission Date: 20130627
  Serious: No
  Sender: FDA-Public Use
  Company Number: US-BIOGENIDEC-2012BI061542

PATIENT
  Sex: Female

DRUGS (1)
  1. AVONEX [Suspect]
     Indication: MULTIPLE SCLEROSIS
     Route: 030
     Dates: start: 19981031

REACTIONS (5)
  - Sciatica [Unknown]
  - Intervertebral disc disorder [Recovered/Resolved]
  - General physical health deterioration [Recovered/Resolved]
  - Influenza like illness [Recovered/Resolved]
  - Asthenia [Unknown]
